FAERS Safety Report 5737723-8 (Version None)
Quarter: 2008Q2

REPORT INFORMATION
  Report Type: 
  Country: None (occurrence: None)
  Receive Date: 20080514
  Receipt Date: 20080509
  Transmission Date: 20081010
  Serious: Yes (Other)
  Sender: FDA-Public Use
  Company Number: A0727261A

PATIENT
  Sex: Male

DRUGS (2)
  1. WELLBUTRIN [Suspect]
     Dosage: 1TAB TWICE PER DAY
     Route: 048
     Dates: start: 20071101, end: 20080301
  2. NO CONCURRENT MEDICATION [Concomitant]

REACTIONS (5)
  - AGGRESSION [None]
  - DRUG INEFFECTIVE [None]
  - EMOTIONAL DISORDER [None]
  - IRRITABILITY [None]
  - NICOTINE DEPENDENCE [None]
